FAERS Safety Report 4880835-1 (Version None)
Quarter: 2005Q4

REPORT INFORMATION
  Report Type: 
  Country: None (occurrence: None)
  Receive Date: 20051223
  Receipt Date: 20051104
  Transmission Date: 20060501
  Serious: No
  Sender: FDA-Public Use
  Company Number: 05P-163-0316625-00

PATIENT
  Age: 33 Year
  Sex: Female
  Weight: 89.3586 kg

DRUGS (4)
  1. HUMIRA [Suspect]
     Indication: CROHN'S DISEASE
     Dosage: 40 MG, 1 IN 2 WK, SUBCUTANEOUS
     Route: 058
     Dates: start: 20051019
  2. LORAZEPAM [Concomitant]
  3. VICODIN [Concomitant]
  4. MULTIVITAMIN [Concomitant]

REACTIONS (6)
  - FATIGUE [None]
  - HEADACHE [None]
  - INJECTION SITE PAIN [None]
  - LETHARGY [None]
  - NAUSEA [None]
  - VOMITING [None]
